FAERS Safety Report 13186350 (Version 1)
Quarter: 2017Q1

REPORT INFORMATION
  Report Type: Spontaneous
  Country: DE (occurrence: DE)
  Receive Date: 20170204
  Receipt Date: 20170204
  Transmission Date: 20170428
  Serious: Yes (Other)
  Sender: FDA-Public Use
  Company Number: DE-TEVA-735135GER

PATIENT
  Age: 70 Year
  Sex: Male

DRUGS (3)
  1. DOXEPIN [Suspect]
     Active Substance: DOXEPIN
     Indication: DEPRESSION
     Dosage: 350 MILLIGRAM DAILY;
     Route: 065
  2. DOXEPIN [Interacting]
     Active Substance: DOXEPIN
     Dosage: REDUCED TO 50MG
     Route: 065
  3. DULOXETINE. [Interacting]
     Active Substance: DULOXETINE
     Indication: DEPRESSION
     Dosage: 60MG
     Route: 065

REACTIONS (2)
  - Urinary retention [Unknown]
  - Drug interaction [Unknown]
